FAERS Safety Report 7095436-7 (Version None)
Quarter: 2010Q4

REPORT INFORMATION
  Report Type: 
  Country: None (occurrence: None)
  Receive Date: 20101102
  Receipt Date: 20101019
  Transmission Date: 20110411
  Serious: Yes (Hospitalization)
  Sender: FDA-Public Use
  Company Number: 019530

PATIENT
  Sex: Female
  Weight: 50 kg

DRUGS (48)
  1. CIMZIA [Suspect]
     Indication: RHEUMATOID ARTHRITIS
     Dosage: (200 MG 1X/2 WEEKS SUBCUTANEOUS)
     Route: 058
     Dates: start: 20100428, end: 20100909
  2. METHOTREXATE [Concomitant]
  3. FOLIC ACID [Concomitant]
  4. DEFLAZACORT [Concomitant]
  5. MELOXICAM [Concomitant]
  6. PIROXICAM [Concomitant]
  7. HYDROCORTISONE SODIUM SUCCINATE [Concomitant]
  8. METHYLPREDNISOLONE SODIUM SUCCINATE [Concomitant]
  9. ETANERCEPT [Concomitant]
  10. FERROUS SULFATE [Concomitant]
  11. CALCIUM W/VITAMIN D /00188401/ [Concomitant]
  12. REBAMIPIDE [Concomitant]
  13. METFORMIN HYDROCHLORIDE [Concomitant]
  14. ATORVASTATIN [Concomitant]
  15. ASPIRIN [Concomitant]
  16. NYSTATIN [Concomitant]
  17. NORMAL SALINE [Concomitant]
  18. HARTMANN'S SOLUTION [Concomitant]
  19. DEXTROSE [Concomitant]
  20. SODIUM CHLORIDE [Concomitant]
  21. POTASSIUM CHLORIDE [Concomitant]
  22. INSULIN HUMAN [Concomitant]
  23. PANTOPRAZOLE SODIUM [Concomitant]
  24. CEFOTAXIME SODIUM [Concomitant]
  25. METRONIDAZOLE [Concomitant]
  26. ACETAMINOPHEN WITH PROPOXYPHENE HCL TAB [Concomitant]
  27. INSULIN LISPRO [Concomitant]
  28. PLATELETS [Concomitant]
  29. RED BLOOD CELLS [Concomitant]
  30. COLONLYTELY /01271501/ [Concomitant]
  31. ACYCLOVIR [Concomitant]
  32. CEFTAZIDIME [Concomitant]
  33. ALBUMIN HUMAN /02052501/ [Concomitant]
  34. FAMOTIDINE [Concomitant]
  35. BENZYDAMINE HYDROCHLORIDE [Concomitant]
  36. LIDOCAINE HYDROCHLORIDE [Concomitant]
  37. TRANEXAMIC ACID [Concomitant]
  38. PARENTERAL [Concomitant]
  39. ACETYLCYSTEINE [Concomitant]
  40. HYALURONATE SODIUM [Concomitant]
  41. TOBRAMYCIN [Concomitant]
  42. OFLOXACIN [Concomitant]
  43. VANCOMYCIN HCL [Concomitant]
  44. FLUOCINOLONE ACETONIDE [Concomitant]
  45. RANITIDINE HYDROCHLORIDE [Concomitant]
  46. NEPHRAMINE /00556101/ [Concomitant]
  47. MOSAPRIE CITRATE [Concomitant]
  48. METFORMIN HYDROCHLORIDE [Concomitant]

REACTIONS (9)
  - BLEPHARITIS [None]
  - COLITIS ISCHAEMIC [None]
  - HAEMOGLOBIN DECREASED [None]
  - HYPERPHAGIA [None]
  - MUCOSAL INFLAMMATION [None]
  - ORAL CANDIDIASIS [None]
  - OVARIAN ABSCESS [None]
  - PANCYTOPENIA [None]
  - SMALL INTESTINAL OBSTRUCTION [None]
